FAERS Safety Report 11106364 (Version 1)
Quarter: 2015Q2

REPORT INFORMATION
  Report Type: Spontaneous
  Country: CO (occurrence: CO)
  Receive Date: 20150512
  Receipt Date: 20150512
  Transmission Date: 20150821
  Serious: Yes (Hospitalization, Other)
  Sender: FDA-Public Use
  Company Number: CO-PFIZER INC-2015159777

PATIENT
  Age: 57 Year
  Sex: Male

DRUGS (2)
  1. MICOFENOLATO MOFETIL [Concomitant]
     Dosage: UNK
  2. RAPAMUNE [Suspect]
     Active Substance: SIROLIMUS
     Indication: RENAL TRANSPLANT
     Dosage: 1 MG, 3X/DAY
     Route: 048
     Dates: start: 20140129

REACTIONS (4)
  - Joint tuberculosis [Recovered/Resolved]
  - Urinary tract infection [Recovered/Resolved]
  - Blood glucose increased [Not Recovered/Not Resolved]
  - Retinal disorder [Unknown]

NARRATIVE: CASE EVENT DATE: 201411
